FAERS Safety Report 6990447-1 (Version None)
Quarter: 2010Q3

REPORT INFORMATION
  Report Type: 
  Country: None (occurrence: None)
  Receive Date: 20100916
  Receipt Date: 20100611
  Transmission Date: 20110219
  Serious: Yes (Hospitalization, Other)
  Sender: FDA-Public Use
  Company Number: US-PFIZER INC-2010070037

PATIENT
  Sex: Female
  Weight: 53.424 kg

DRUGS (5)
  1. LYRICA [Suspect]
     Indication: FIBROMYALGIA
     Dosage: 50 MG, 3X/DAY
     Route: 048
     Dates: start: 20090101, end: 20100531
  2. REQUIP [Concomitant]
     Indication: RESTLESS LEGS SYNDROME
     Dosage: 2 MG, 2X/DAY
  3. SYMBICORT [Concomitant]
     Dosage: UNK
  4. SPIRIVA [Concomitant]
     Dosage: UNK
  5. PROCARDIA [Concomitant]
     Dosage: 70 MG/DAILY

REACTIONS (7)
  - ABDOMINAL PAIN [None]
  - NAUSEA [None]
  - OEDEMA PERIPHERAL [None]
  - PAIN [None]
  - RASH PUSTULAR [None]
  - SKIN REACTION [None]
  - WEIGHT INCREASED [None]
